FAERS Safety Report 19436674 (Version 2)
Quarter: 2022Q2

REPORT INFORMATION
  Report Type: Spontaneous
  Country: CA (occurrence: CA)
  Receive Date: 20210618
  Receipt Date: 20220523
  Transmission Date: 20220721
  Serious: Yes (Other)
  Sender: FDA-Public Use
  Company Number: CA-SA-SAC20210615000352

PATIENT
  Age: 13 Year
  Sex: Male

DRUGS (5)
  1. LEMTRADA [Suspect]
     Active Substance: ALEMTUZUMAB
     Indication: Haemophagocytic lymphohistiocytosis
     Dosage: UNK
     Route: 065
  2. ETOPOSIDE [Suspect]
     Active Substance: ETOPOSIDE
  3. METHOTREXATE [Suspect]
     Active Substance: METHOTREXATE
  4. DEXAMETHASONE [Suspect]
     Active Substance: DEXAMETHASONE
  5. KINERET [Suspect]
     Active Substance: ANAKINRA
     Dosage: 100 MG
     Route: 058

REACTIONS (2)
  - Febrile neutropenia [Recovered/Resolved]
  - Staphylococcal bacteraemia [Recovered/Resolved]
